FAERS Safety Report 5193718-7 (Version None)
Quarter: 2006Q4

REPORT INFORMATION
  Report Type: 
  Country: None (occurrence: None)
  Receive Date: 20061222
  Receipt Date: 20061212
  Transmission Date: 20070319
  Serious: Yes (Other)
  Sender: FDA-Public Use
  Company Number: 2006153379

PATIENT
  Sex: Male
  Weight: 79.3795 kg

DRUGS (2)
  1. VIAGRA [Suspect]
     Indication: DISABILITY
     Dosage: (50 MG)
  2. PRILOSEC [Concomitant]

REACTIONS (2)
  - EXCESSIVE MASTURBATION [None]
  - SEXUAL DYSFUNCTION [None]
